FAERS Safety Report 26085345 (Version 1)
Quarter: 2025Q4

REPORT INFORMATION
  Report Type: Spontaneous
  Country: KR (occurrence: KR)
  Receive Date: 20251125
  Receipt Date: 20251125
  Transmission Date: 20260118
  Serious: Yes (Other)
  Sender: BEIGENE
  Company Number: KR-BEONE MEDICINES-BGN-2025-020347

PATIENT

DRUGS (3)
  1. TEVIMBRA [Suspect]
     Active Substance: TISLELIZUMAB-JSGR
     Indication: Oesophageal squamous cell carcinoma
     Dosage: UNK
  2. DOCETAXEL [Concomitant]
     Active Substance: DOCETAXEL
  3. PLATINUM [Concomitant]
     Active Substance: PLATINUM
     Dosage: UNK

REACTIONS (4)
  - Vasculitis gastrointestinal [Unknown]
  - Melaena [Unknown]
  - Haematochezia [Unknown]
  - Vasculitis [Unknown]
